FAERS Safety Report 6814250-8 (Version None)
Quarter: 2010Q3

REPORT INFORMATION
  Report Type: 
  Country: None (occurrence: None)
  Receive Date: 20100702
  Receipt Date: 20100623
  Transmission Date: 20110219
  Serious: Yes (Other)
  Sender: FDA-Public Use
  Company Number: GB-JNJFOC-20091007196

PATIENT
  Sex: Male

DRUGS (4)
  1. HALDOL [Suspect]
     Indication: PRODUCT USED FOR UNKNOWN INDICATION
     Route: 030
  2. HALDOL [Suspect]
     Route: 030
  3. AMISULPRIDE [Suspect]
     Indication: PRODUCT USED FOR UNKNOWN INDICATION
     Route: 065
  4. VITAMIN TAB [Concomitant]
     Indication: PRODUCT USED FOR UNKNOWN INDICATION
     Route: 065

REACTIONS (21)
  - AGITATION [None]
  - ANXIETY [None]
  - APATHY [None]
  - BIPOLAR DISORDER [None]
  - BLINDNESS [None]
  - DEPRESSION [None]
  - DRUG ADMINISTERED AT INAPPROPRIATE SITE [None]
  - EXTRAPYRAMIDAL DISORDER [None]
  - EYE ROLLING [None]
  - FATIGUE [None]
  - FEELING ABNORMAL [None]
  - GLAUCOMA [None]
  - HAND DEFORMITY [None]
  - HYPOKINESIA [None]
  - INJECTION SITE NODULE [None]
  - JAUNDICE [None]
  - NOCTURIA [None]
  - RESTLESS LEGS SYNDROME [None]
  - SALIVARY HYPERSECRETION [None]
  - TARDIVE DYSKINESIA [None]
  - TONGUE DISORDER [None]
